FAERS Safety Report 11377684 (Version 1)
Quarter: 2015Q3

REPORT INFORMATION
  Report Type: Spontaneous
  Country: US (occurrence: US)
  Receive Date: 20150811
  Receipt Date: 20150811
  Transmission Date: 20151125
  Serious: No
  Sender: FDA-Public Use
  Company Number: US-ELI_LILLY_AND_COMPANY-US200907000421

PATIENT
  Sex: Female

DRUGS (1)
  1. HUMULIN R [Suspect]
     Active Substance: INSULIN HUMAN
     Route: 058
     Dates: start: 200901

REACTIONS (8)
  - Glycosylated haemoglobin increased [Unknown]
  - Spondylitis [Unknown]
  - Blood glucose fluctuation [Recovering/Resolving]
  - Pain in extremity [Unknown]
  - Movement disorder [Unknown]
  - Carpal tunnel syndrome [Not Recovered/Not Resolved]
  - Musculoskeletal pain [Unknown]
  - Paraesthesia [Unknown]

NARRATIVE: CASE EVENT DATE: 2009
